FAERS Safety Report 26164972 (Version 1)
Quarter: 2025Q4

REPORT INFORMATION
  Report Type: Spontaneous
  Country: CN (occurrence: CN)
  Receive Date: 20251216
  Receipt Date: 20251216
  Transmission Date: 20260117
  Serious: Yes (Other)
  Sender: CSL BEHRING
  Company Number: CN-BEH-2025229065

PATIENT
  Age: 1 Day
  Sex: Female
  Weight: 2.88 kg

DRUGS (2)
  1. ALBURX [Suspect]
     Active Substance: ALBUMIN HUMAN
     Indication: Hypotension
     Dosage: 2.8 G, OD
     Route: 042
     Dates: start: 20251123, end: 20251123
  2. DEXTROSE [Suspect]
     Active Substance: DEXTROSE MONOHYDRATE
     Indication: Blood osmolarity increased
     Dosage: 14 ML, OD
     Route: 042
     Dates: start: 20251123, end: 20251123

REACTIONS (8)
  - Pyrexia [Recovering/Resolving]
  - Heart rate increased [Unknown]
  - Respiratory rate increased [Unknown]
  - Oxygen saturation decreased [Recovering/Resolving]
  - Hypotension [Unknown]
  - Sputum increased [Unknown]
  - Sputum discoloured [Unknown]
  - Off label use [Unknown]

NARRATIVE: CASE EVENT DATE: 20251123
